FAERS Safety Report 18570365 (Version 1)
Quarter: 2020Q4

REPORT INFORMATION
  Report Type: Report from Study
  Country: ES (occurrence: ES)
  Receive Date: 20201202
  Receipt Date: 20201202
  Transmission Date: 20210114
  Serious: Yes (Hospitalization)
  Sender: FDA-Public Use
  Company Number: ES-GW PHARMA-201802ESGW0087

PATIENT

DRUGS (9)
  1. EPIDIOLEX [Suspect]
     Active Substance: CANNABIDIOL
     Dosage: 40 MILLIGRAM, 2 IN 2 HOURS
     Route: 048
     Dates: start: 20180206
  2. DEPAKINE [Suspect]
     Active Substance: VALPROATE SODIUM
     Indication: SEVERE MYOCLONIC EPILEPSY OF INFANCY
     Dosage: 120 MILLIGRAM, Q8H
     Route: 048
     Dates: start: 20160205, end: 20180206
  3. ZARONTIN [Suspect]
     Active Substance: ETHOSUXIMIDE
     Indication: SEVERE MYOCLONIC EPILEPSY OF INFANCY
     Dosage: 125 MILLIGRAM, Q12H
     Route: 048
     Dates: start: 201706
  4. CARNICOR [Concomitant]
     Indication: PRODUCT USED FOR UNKNOWN INDICATION
     Dosage: 2 ML, Q8H
  5. NOIAFREN [Suspect]
     Active Substance: CLOBAZAM
     Indication: SEVERE MYOCLONIC EPILEPSY OF INFANCY
     Dosage: 5 MILLIGRAM, QD
     Route: 048
     Dates: start: 20060604, end: 20180206
  6. NOIAFREN [Suspect]
     Active Substance: CLOBAZAM
     Dosage: 2.5 MILLIGRAM, QD
     Route: 048
     Dates: start: 20180206
  7. DEPAKINE [Suspect]
     Active Substance: VALPROATE SODIUM
     Dosage: 100 MILLIGRAM, Q8H
     Route: 048
     Dates: start: 20180206
  8. DIACOMIT [Suspect]
     Active Substance: STIRIPENTOL
     Indication: SEVERE MYOCLONIC EPILEPSY OF INFANCY
     Dosage: 200 MILLIGRAM, TID
     Route: 048
     Dates: start: 20160724
  9. EPIDIOLEX [Suspect]
     Active Substance: CANNABIDIOL
     Indication: SEVERE MYOCLONIC EPILEPSY OF INFANCY
     Dosage: 70 MILLIGRAM, BID
     Route: 048
     Dates: start: 20180111, end: 20180206

REACTIONS (11)
  - Alanine aminotransferase increased [Recovered/Resolved]
  - Gamma-glutamyltransferase increased [Recovered/Resolved]
  - Ammonia increased [Recovered/Resolved]
  - Platelet count decreased [Recovered/Resolved]
  - Pyrexia [Recovered/Resolved]
  - Pyrexia [Recovered/Resolved]
  - Respiratory tract infection [Recovered/Resolved]
  - Seizure [Recovered/Resolved]
  - Aspartate aminotransferase increased [Recovered/Resolved]
  - Somnolence [Recovered/Resolved]
  - Seizure [Recovered/Resolved]

NARRATIVE: CASE EVENT DATE: 20180129
